FAERS Safety Report 4514845-0 (Version None)
Quarter: 2004Q4

REPORT INFORMATION
  Report Type: 
  Country: None (occurrence: None)
  Receive Date: 20041201
  Receipt Date: 20041119
  Transmission Date: 20050328
  Serious: Yes (Hospitalization)
  Sender: FDA-Public Use
  Company Number: JP-BRISTOL-MYERS SQUIBB COMPANY-12775649

PATIENT
  Age: 68 Year
  Sex: Female

DRUGS (2)
  1. GATIFLO TABS 100 MG [Suspect]
     Route: 048
     Dates: start: 20041029, end: 20041030
  2. CALONAL [Concomitant]
     Route: 048
     Dates: start: 20041029, end: 20041030

REACTIONS (4)
  - HEPATIC FUNCTION ABNORMAL [None]
  - PLATELET COUNT DECREASED [None]
  - RASH [None]
  - WHITE BLOOD CELL COUNT DECREASED [None]
